FAERS Safety Report 5895685-7 (Version None)
Quarter: 2008Q3

REPORT INFORMATION
  Report Type: 
  Country: None (occurrence: None)
  Receive Date: 20080924
  Receipt Date: 20071022
  Transmission Date: 20090109
  Serious: Yes (Disabling, Other)
  Sender: FDA-Public Use
  Company Number: US-BAYER-200713519BWH

PATIENT
  Age: 56 Year
  Sex: Male

DRUGS (2)
  1. CIPRO [Suspect]
     Indication: PROSTATE INFECTION
     Dosage: TOTAL DAILY DOSE: 1000 MG  UNIT DOSE: 500 MG
     Route: 048
     Dates: start: 20070501, end: 20070509
  2. SYNTHROID [Concomitant]

REACTIONS (3)
  - GAIT DISTURBANCE [None]
  - TENDON INJURY [None]
  - TENDON PAIN [None]
